FAERS Safety Report 6330394-1 (Version None)
Quarter: 2009Q3

REPORT INFORMATION
  Report Type: 
  Country: None (occurrence: None)
  Receive Date: 20090827
  Receipt Date: 20090818
  Transmission Date: 20100115
  Serious: Yes (Death, Other)
  Sender: FDA-Public Use
  Company Number: GB-JNJFOC-20090404954

PATIENT
  Age: 51 Year
  Sex: Male
  Weight: 82 kg

DRUGS (18)
  1. REMICADE [Suspect]
     Indication: RHEUMATOID ARTHRITIS
     Route: 042
  2. METHOTREXATE [Concomitant]
  3. PREDNISONE TAB [Concomitant]
  4. AMLODIPINE [Concomitant]
  5. ATENOLOL [Concomitant]
  6. BENORYLATE [Concomitant]
  7. DIDRONEL [Concomitant]
  8. FLUOXETINE [Concomitant]
  9. FOLIC ACID [Concomitant]
  10. INDOMETHACIN [Concomitant]
  11. OMEPRAZOLE [Concomitant]
  12. CYCLOSPORINE [Concomitant]
  13. CALCICHEW [Concomitant]
  14. PARACETAMOL [Concomitant]
  15. BISOPROLOL [Concomitant]
  16. FOSAMAX [Concomitant]
  17. TESTOSTERONE [Concomitant]
  18. DAPSONE [Concomitant]

REACTIONS (2)
  - SEPSIS [None]
  - SKIN ULCER [None]
